FAERS Safety Report 18388587 (Version 2)
Quarter: 2022Q2

REPORT INFORMATION
  Report Type: Spontaneous
  Country: US (occurrence: US)
  Receive Date: 20201015
  Receipt Date: 20220427
  Transmission Date: 20220720
  Serious: Yes (Other)
  Sender: FDA-Public Use
  Company Number: US-TEVA-2020-US-1838352

PATIENT

DRUGS (9)
  1. BUPRENORPHINE [Suspect]
     Active Substance: BUPRENORPHINE
     Route: 062
  2. ACETAMINOPHEN\HYDROCODONE [Suspect]
     Active Substance: ACETAMINOPHEN\HYDROCODONE
     Route: 065
  3. OXYCODONE HYDROCHLORIDE [Suspect]
     Active Substance: OXYCODONE HYDROCHLORIDE
     Dosage: OXYCODONE IMMEDIATE-RELEASE TABLETS
     Route: 065
  4. OXYCODONE AND ACETAMINOPHEN [Suspect]
     Active Substance: ACETAMINOPHEN\OXYCODONE HYDROCHLORIDE
     Route: 065
  5. TRAMADOL [Suspect]
     Active Substance: TRAMADOL
     Route: 065
  6. OXYCODONE [Suspect]
     Active Substance: OXYCODONE
     Dosage: OXYCODONE EXTENDED- RELEASE TABLETS
     Route: 065
  7. HYDROMORPHONE [Suspect]
     Active Substance: HYDROMORPHONE
     Route: 065
  8. SUBOXONE [Suspect]
     Active Substance: BUPRENORPHINE HYDROCHLORIDE\NALOXONE HYDROCHLORIDE
     Route: 065
  9. UNSPECIFIED INGREDIENT [Suspect]
     Active Substance: UNSPECIFIED INGREDIENT
     Route: 065

REACTIONS (15)
  - Drug dependence [Unknown]
  - Substance use disorder [Unknown]
  - Poisoning [Unknown]
  - Failure to thrive [Unknown]
  - Overdose [Unknown]
  - Economic problem [Unknown]
  - Loss of employment [Unknown]
  - Emotional distress [Unknown]
  - Legal problem [Unknown]
  - Aggression [Unknown]
  - Feeling guilty [Unknown]
  - Abnormal behaviour [Unknown]
  - Anxiety [Unknown]
  - Depression [Unknown]
  - Personal relationship issue [Unknown]
